FAERS Safety Report 6285099-2 (Version None)
Quarter: 2009Q3

REPORT INFORMATION
  Report Type: 
  Country: None (occurrence: None)
  Receive Date: 20090727
  Receipt Date: 20090626
  Transmission Date: 20100115
  Serious: Yes (Other)
  Sender: FDA-Public Use
  Company Number: BR-BRISTOL-MYERS SQUIBB COMPANY-14698765

PATIENT
  Age: 31 Year
  Sex: Female

DRUGS (3)
  1. EFAVIRENZ [Suspect]
     Indication: HIV INFECTION
     Dosage: WITHDRAWN ON 01JUL09.
     Route: 048
     Dates: start: 20080416, end: 20090616
  2. LAMIVUDINE + ZIDOVUDINE [Suspect]
     Indication: HIV INFECTION
     Dosage: 1DOSAGEFORM= 300/150MG
     Route: 048
     Dates: start: 20080416
  3. MEDROXYPROGESTERONE ACETATE [Concomitant]
     Dates: start: 20080416

REACTIONS (3)
  - DEPRESSION [None]
  - HOMICIDAL IDEATION [None]
  - SUICIDAL IDEATION [None]
